FAERS Safety Report 6909211-4 (Version None)
Quarter: 2010Q3

REPORT INFORMATION
  Report Type: 
  Country: None (occurrence: None)
  Receive Date: 20100805
  Receipt Date: 20100729
  Transmission Date: 20110219
  Serious: Yes (Other)
  Sender: FDA-Public Use
  Company Number: JP-BAYER-201013922BYL

PATIENT

DRUGS (7)
  1. CIPROFLOXACIN HCL [Suspect]
     Indication: PROPHYLAXIS
     Dosage: GIVEN ON DAY-4 AND CONTINUED UNTIL THE DAY OF ENGRAFTMENT
     Route: 048
  2. MELPHALAN [Concomitant]
     Indication: STEM CELL TRANSPLANT
     Dosage: ON DAY -4 AND DAY -3
     Route: 042
  3. LEVOFLOXACIN [Concomitant]
     Indication: PROPHYLAXIS
     Dosage: GIVEN ON DAY-4 AND CONTINUED UNTIL THE DAY OF ENGRAFTMENT
     Route: 065
  4. FLUCONAZOLE [Concomitant]
     Indication: PROPHYLAXIS
     Dosage: SINCE DAY-4 AND CONTINUED DAY 35
     Route: 065
  5. SULFAMETHOXAZOLE AND TRIMETHOPRIM [Concomitant]
     Indication: PROPHYLAXIS
     Dosage: ON DAY -9 AND DAY -8
     Route: 065
  6. SULFAMETHOXAZOLE AND TRIMETHOPRIM [Concomitant]
     Dosage: SINCE THE DAY OF ENGRAFTMENTAND CONTINUED UNTIL DAY 180
     Route: 065
  7. ACYCLOVIR [Concomitant]
     Indication: PROPHYLAXIS
     Dosage: SINCE DAY 6 AND CONTINUED UNTIL DAY 365
     Route: 065

REACTIONS (3)
  - DIARRHOEA [None]
  - FEBRILE NEUTROPENIA [None]
  - STOMATITIS [None]
